FAERS Safety Report 11025097 (Version 1)
Quarter: 2015Q2

REPORT INFORMATION
  Report Type: Spontaneous
  Country: US (occurrence: None)
  Receive Date: 20150413
  Receipt Date: 20150413
  Transmission Date: 20150821
  Serious: No
  Sender: FDA-Public Use
  Company Number: None

PATIENT

DRUGS (1)
  1. VELCADE [Suspect]
     Active Substance: BORTEZOMIB
     Dosage: DOSAGE FORM: INJECTABLE

REACTIONS (4)
  - Wrong patient received medication [None]
  - Chest pain [None]
  - Atrial fibrillation [None]
  - Skin discolouration [None]

NARRATIVE: CASE EVENT DATE: 2015
